FAERS Safety Report 8757737 (Version 3)
Quarter: 2012Q4

REPORT INFORMATION
  Report Type: Report from Study
  Country: GB (occurrence: GB)
  Receive Date: 20120828
  Receipt Date: 20120926
  Transmission Date: 20130627
  Serious: Yes (Hospitalization)
  Sender: FDA-Public Use
  Company Number: GB-ROCHE-1104474

PATIENT
  Age: 52 Year
  Sex: Female
  Weight: 86.9 kg

DRUGS (10)
  1. PERTUZUMAB [Suspect]
     Indication: BREAST CANCER
     Dosage: Last dose prior to SAE:26/Jul/2012
     Route: 042
     Dates: start: 20110304, end: 20120816
  2. PERTUZUMAB [Suspect]
     Route: 042
     Dates: start: 20120823
  3. XELODA [Suspect]
     Indication: BREAST CANCER
     Dosage: Last dose prior to SAE:09/Aug/2012
     Route: 048
     Dates: start: 20110304, end: 20120816
  4. XELODA [Suspect]
     Route: 048
     Dates: start: 20120823
  5. HERCEPTIN [Suspect]
     Indication: BREAST CANCER
     Dosage: Last dose prior to SAE:26/Jul/2012
     Route: 042
     Dates: start: 20110304, end: 20120816
  6. HERCEPTIN [Suspect]
     Route: 042
     Dates: start: 20120823
  7. CITALOPRAM [Concomitant]
     Route: 065
     Dates: start: 201007
  8. ADCAL [Concomitant]
     Route: 065
     Dates: start: 200903
  9. LOPERAMIDE [Concomitant]
     Route: 065
     Dates: start: 20110304
  10. ZOLEDRONIC ACID [Concomitant]
     Route: 065
     Dates: start: 20090302

REACTIONS (1)
  - Vena cava thrombosis [Not Recovered/Not Resolved]
